FAERS Safety Report 25821380 (Version 1)
Quarter: 2025Q3

REPORT INFORMATION
  Report Type: Report from Study
  Country: US (occurrence: US)
  Receive Date: 20250919
  Receipt Date: 20250919
  Transmission Date: 20251021
  Serious: No
  Sender: SUNOVION
  Company Number: US-SUMITOMO PHARMA SWITZERLAND GMBH-2025SPA011820

PATIENT
  Age: 83 Year
  Sex: Male

DRUGS (15)
  1. ORGOVYX [Suspect]
     Active Substance: RELUGOLIX
     Indication: Prostate cancer
     Route: 048
  2. ORGOVYX [Suspect]
     Active Substance: RELUGOLIX
     Route: 048
  3. ACETAMINOPHEN [Concomitant]
     Active Substance: ACETAMINOPHEN
  4. ALFUZOSIN [Concomitant]
     Active Substance: ALFUZOSIN
  5. ASPIRIN [Concomitant]
     Active Substance: ASPIRIN
  6. EPINEPHRINE [Concomitant]
     Active Substance: EPINEPHRINE
  7. FENOFIBRATE [Concomitant]
     Active Substance: FENOFIBRATE
  8. GLIPIZIDE [Concomitant]
     Active Substance: GLIPIZIDE
  9. INDOMETHACIN [Concomitant]
     Active Substance: INDOMETHACIN
  10. METOPROLOL [Concomitant]
     Active Substance: METOPROLOL
  11. NUBEQA [Concomitant]
     Active Substance: DAROLUTAMIDE
  12. ROSUVASTATIN [Concomitant]
     Active Substance: ROSUVASTATIN
  13. SODIUM BICARBONATE [Concomitant]
     Active Substance: SODIUM BICARBONATE
  14. TRADJENTA [Concomitant]
     Active Substance: LINAGLIPTIN
  15. VASCEPA [Concomitant]
     Active Substance: ICOSAPENT ETHYL

REACTIONS (2)
  - Rash [Unknown]
  - Fatigue [Unknown]
